FAERS Safety Report 5716555-0 (Version None)
Quarter: 2008Q2

REPORT INFORMATION
  Report Type: 
  Country: None (occurrence: None)
  Receive Date: 20080424
  Receipt Date: 20080417
  Transmission Date: 20081010
  Serious: Yes (Death, Hospitalization)
  Sender: FDA-Public Use
  Company Number: US-BAXTER-2008BH003111

PATIENT
  Age: 59 Year
  Sex: Female

DRUGS (1)
  1. HEPARIN SODIUM [Suspect]
     Indication: PROPHYLAXIS
     Route: 033

REACTIONS (7)
  - ABASIA [None]
  - BLOOD PRESSURE DECREASED [None]
  - CARDIAC ARREST [None]
  - CONFUSIONAL STATE [None]
  - DIARRHOEA [None]
  - LOSS OF CONTROL OF LEGS [None]
  - OXYGEN SATURATION DECREASED [None]
